FAERS Safety Report 7585879-7 (Version None)
Quarter: 2011Q2

REPORT INFORMATION
  Report Type: 
  Country: None (occurrence: None)
  Receive Date: 20110624
  Receipt Date: 20110613
  Transmission Date: 20111010
  Serious: Yes (Hospitalization)
  Sender: FDA-Public Use
  Company Number: 2011AM004686

PATIENT
  Age: 61 Year
  Sex: Female

DRUGS (15)
  1. FUROSEMIDE [Concomitant]
  2. NADOLOL [Concomitant]
  3. NYSTATIN [Concomitant]
  4. SYMLIN [Suspect]
     Indication: TYPE 2 DIABETES MELLITUS
     Dosage: 60 MCG;TID;SC
     Route: 058
     Dates: start: 20110301, end: 20110611
  5. XIFAXAN [Concomitant]
  6. SPIRONOLACTONE [Concomitant]
  7. URSODIOL [Concomitant]
  8. TRIAMCINOLONE [Concomitant]
  9. LANTUS [Concomitant]
  10. SYNTHROID [Concomitant]
  11. BONIVA [Concomitant]
  12. LACTULOSE [Concomitant]
  13. HUMALOG [Concomitant]
  14. CHOLESTRYAMINE RESIN [Concomitant]
  15. DIPHEN ATROP [Concomitant]

REACTIONS (7)
  - HEADACHE [None]
  - DECREASED APPETITE [None]
  - FEELING ABNORMAL [None]
  - DIZZINESS [None]
  - NAUSEA [None]
  - OROPHARYNGEAL PAIN [None]
  - VOMITING [None]
